FAERS Safety Report 18079128 (Version 1)
Quarter: 2020Q3

REPORT INFORMATION
  Report Type: Spontaneous
  Country: US (occurrence: US)
  Receive Date: 20200728
  Receipt Date: 20200728
  Transmission Date: 20201103
  Serious: Yes (Hospitalization)
  Sender: FDA-Public Use
  Company Number: None

PATIENT
  Age: 74 Year
  Sex: Female
  Weight: 79.2 kg

DRUGS (3)
  1. CARBOPLATIN. [Suspect]
     Active Substance: CARBOPLATIN
     Dates: end: 20200416
  2. MEDI4736 (DURVALUMAB) [Suspect]
     Active Substance: DURVALUMAB
     Dates: end: 20200701
  3. TAXOL [Suspect]
     Active Substance: PACLITAXEL
     Dates: end: 20200416

REACTIONS (4)
  - Atelectasis [None]
  - Malignant pleural effusion [None]
  - Dyspnoea [None]
  - Disease progression [None]

NARRATIVE: CASE EVENT DATE: 20200706
